FAERS Safety Report 7238122-2 (Version None)
Quarter: 2011Q1

REPORT INFORMATION
  Report Type: 
  Country: None (occurrence: None)
  Receive Date: 20110121
  Receipt Date: 20110110
  Transmission Date: 20110831
  Serious: Yes (Congenital Anomaly, Other)
  Sender: FDA-Public Use
  Company Number: US-ELI_LILLY_AND_COMPANY-US201101003629

PATIENT

DRUGS (7)
  1. TRAZODONE [Concomitant]
     Route: 064
  2. CELEXA [Concomitant]
     Dosage: 40 MG, UNK
     Route: 064
  3. CLONAZEPAM [Concomitant]
     Route: 064
  4. XANAX [Concomitant]
     Route: 064
  5. CYMBALTA [Suspect]
     Dosage: 60 MG, DAILY (1/D)
     Route: 064
  6. VALACICLOVIR [Concomitant]
     Indication: HERPES VIRUS INFECTION
     Dosage: 500 MG, DAILY (1/D)
     Route: 064
  7. PERCOCET [Concomitant]
     Route: 064

REACTIONS (4)
  - FALLOT'S TETRALOGY [None]
  - CLEFT LIP AND PALATE [None]
  - PREMATURE BABY [None]
  - DRUG EXPOSURE DURING PREGNANCY [None]
